FAERS Safety Report 4703812-X (Version None)
Quarter: 2005Q2

REPORT INFORMATION
  Report Type: 
  Country: None (occurrence: None)
  Receive Date: 20050629
  Receipt Date: 20050629
  Transmission Date: 20051028
  Serious: No
  Sender: FDA-Public Use
  Company Number: None

PATIENT
  Sex: Female

DRUGS (4)
  1. MOXIFLOXACIN   400 MG [Suspect]
     Dosage: 400 MG   QD   INTRAVENOU
     Route: 042
     Dates: start: 20050419, end: 20050419
  2. IPRATROPIUM BROMIDE [Concomitant]
  3. METOCLOPRAMIDE [Concomitant]
  4. ACETAMINOPHEN [Concomitant]

REACTIONS (1)
  - HYPERGLYCAEMIA [None]
